FAERS Safety Report 9972314 (Version 1)
Quarter: 2014Q1

REPORT INFORMATION
  Report Type: Spontaneous
  Country: IN (occurrence: None)
  Receive Date: 20140304
  Receipt Date: 20140304
  Transmission Date: 20141002
  Serious: Yes (Other)
  Sender: FDA-Public Use
  Company Number: 152689

PATIENT
  Age: 38 Year
  Sex: Male

DRUGS (1)
  1. CISPLATIN [Suspect]
     Indication: CHEMOTHERAPY
     Route: 042

REACTIONS (1)
  - Tuberculous pleurisy [None]
